FAERS Safety Report 16761907 (Version 1)
Quarter: 2019Q3

REPORT INFORMATION
  Report Type: Spontaneous
  Country: DE (occurrence: DE)
  Receive Date: 20190830
  Receipt Date: 20190830
  Transmission Date: 20191005
  Serious: Yes (Hospitalization)
  Sender: FDA-Public Use
  Company Number: PHHY2019DE187002

PATIENT
  Sex: Male
  Weight: 60 kg

DRUGS (1)
  1. DESFERAL [Suspect]
     Active Substance: DEFEROXAMINE MESYLATE
     Indication: THALASSAEMIA
     Dosage: 20000 MG, UNK (WITHIN 24 HOURS)
     Route: 042
     Dates: start: 20190805, end: 20190806

REACTIONS (4)
  - Arthralgia [Recovered/Resolved]
  - Overdose [Unknown]
  - Headache [Recovered/Resolved]
  - Pain in extremity [Recovered/Resolved]

NARRATIVE: CASE EVENT DATE: 20190805
